FAERS Safety Report 25076577 (Version 1)
Quarter: 2025Q1

REPORT INFORMATION
  Report Type: Report from Study
  Country: EG (occurrence: EG)
  Receive Date: 20250313
  Receipt Date: 20250313
  Transmission Date: 20250409
  Serious: Yes (Death)
  Sender: PFIZER
  Company Number: EG-PFIZER INC-202500053341

PATIENT
  Age: 4 Year
  Sex: Female

DRUGS (4)
  1. DOXORUBICIN HYDROCHLORIDE [Suspect]
     Active Substance: DOXORUBICIN HYDROCHLORIDE
     Indication: Hodgkin^s disease lymphocyte depletion type stage IV
     Route: 042
  2. VINCRISTINE SULFATE [Suspect]
     Active Substance: VINCRISTINE SULFATE
     Indication: Hodgkin^s disease lymphocyte depletion type stage IV
     Route: 042
  3. ETOPOSIDE [Suspect]
     Active Substance: ETOPOSIDE
     Indication: Hodgkin^s disease lymphocyte depletion type stage IV
     Route: 042
  4. PREDNISONE [Suspect]
     Active Substance: PREDNISONE
     Indication: Hodgkin^s disease lymphocyte depletion type stage IV
     Route: 048

REACTIONS (6)
  - Central nervous system lesion [Fatal]
  - Intraventricular haemorrhage [Fatal]
  - Seizure [Fatal]
  - Lower respiratory tract infection [Fatal]
  - Sepsis [Fatal]
  - Bacterial infection [Fatal]
